FAERS Safety Report 7366313-9 (Version None)
Quarter: 2011Q1

REPORT INFORMATION
  Report Type: 
  Country: None (occurrence: None)
  Receive Date: 20110322
  Receipt Date: 20110308
  Transmission Date: 20110831
  Serious: Yes (Hospitalization, Other)
  Sender: FDA-Public Use
  Company Number: US-JNJFOC-20091203478

PATIENT
  Sex: Male
  Weight: 88.8 kg

DRUGS (7)
  1. REMICADE [Suspect]
     Indication: INFLAMMATORY BOWEL DISEASE
     Route: 042
  2. REMICADE [Suspect]
     Route: 042
  3. REMICADE [Suspect]
     Indication: CROHN'S DISEASE
     Route: 042
  4. CYMBALTA [Concomitant]
  5. PRILOSEC [Concomitant]
  6. REMICADE [Suspect]
     Route: 042
  7. METHOTREXATE [Concomitant]

REACTIONS (2)
  - SYNCOPE [None]
  - CONVULSION [None]
